FAERS Safety Report 7564727-5 (Version None)
Quarter: 2011Q2

REPORT INFORMATION
  Report Type: 
  Country: None (occurrence: None)
  Receive Date: 20110622
  Receipt Date: 20110107
  Transmission Date: 20111010
  Serious: Yes (Other)
  Sender: FDA-Public Use
  Company Number: US-MYLANLABS-2010S1018125

PATIENT
  Age: 37 Year
  Sex: Male

DRUGS (9)
  1. CRESTOR [Concomitant]
  2. VITAMIN TAB [Concomitant]
  3. TRICOR [Concomitant]
  4. CLOZAPINE [Suspect]
     Route: 048
     Dates: start: 20080101, end: 20101122
  5. DEPAKOTE [Concomitant]
  6. GABAPENTIN [Concomitant]
  7. FLUOXETINE HCL [Concomitant]
  8. CLOZAPINE [Suspect]
     Indication: OBSESSIVE-COMPULSIVE DISORDER
     Route: 048
     Dates: start: 20080101, end: 20101122
  9. TOPAMAX [Concomitant]

REACTIONS (1)
  - GRANULOCYTOPENIA [None]
